FAERS Safety Report 7457455-8 (Version None)
Quarter: 2011Q2

REPORT INFORMATION
  Report Type: 
  Country: None (occurrence: None)
  Receive Date: 20110504
  Receipt Date: 20110421
  Transmission Date: 20111010
  Serious: Yes (Hospitalization)
  Sender: FDA-Public Use
  Company Number: US-JNJFOC-20091001390

PATIENT
  Sex: Female
  Weight: 34.6 kg

DRUGS (8)
  1. MIRALAX [Concomitant]
  2. AMITRIPTYLINE [Concomitant]
  3. HUMIRA [Concomitant]
     Route: 030
  4. INFLUENZA VACCINE [Concomitant]
     Indication: PROPHYLAXIS
  5. PANTOPRAZOLE [Concomitant]
  6. PREVACID [Concomitant]
  7. INFLIXIMAB [Suspect]
     Indication: CROHN'S DISEASE
     Route: 042
  8. BENADRYL [Concomitant]

REACTIONS (3)
  - GASTROENTERITIS VIRAL [None]
  - ANAPHYLACTIC REACTION [None]
  - CROHN'S DISEASE [None]
